FAERS Safety Report 21370478 (Version 4)
Quarter: 2022Q4

REPORT INFORMATION
  Report Type: Spontaneous
  Country: US (occurrence: US)
  Receive Date: 20220923
  Receipt Date: 20221117
  Transmission Date: 20230113
  Serious: No
  Sender: FDA-Public Use
  Company Number: US-PFIZER INC-202201179848

PATIENT
  Age: 69 Year
  Sex: Male
  Weight: 106.57 kg

DRUGS (7)
  1. PAXLOVID [Suspect]
     Active Substance: NIRMATRELVIR\RITONAVIR
     Indication: COVID-19 treatment
     Dosage: UNK
     Dates: start: 20220907, end: 20220912
  2. PAXLOVID [Suspect]
     Active Substance: NIRMATRELVIR\RITONAVIR
     Dosage: 3 DF, 2X/DAY
     Route: 048
     Dates: start: 20220909, end: 20220914
  3. ROSUVASTATIN [Suspect]
     Active Substance: ROSUVASTATIN
     Dosage: 10 MG, 1X/DAY (Q DAY)
  4. ASPIRIN [Concomitant]
     Active Substance: ASPIRIN
     Dosage: UNK
     Dates: start: 202203
  5. OMEPRAZOLE [Concomitant]
     Active Substance: OMEPRAZOLE
     Dosage: UNK
     Dates: start: 202203
  6. FLUOXETINE [Concomitant]
     Active Substance: FLUOXETINE HYDROCHLORIDE
     Dosage: 20 MG, 1X/DAY (Q DAY)
  7. SILODOSIN [Concomitant]
     Active Substance: SILODOSIN
     Dosage: 16 MG, 1X/DAY (Q DAY)

REACTIONS (5)
  - Disease recurrence [Recovered/Resolved]
  - COVID-19 [Recovered/Resolved]
  - Off label use [Unknown]
  - Incorrect product administration duration [Unknown]
  - Contraindicated product administered [Unknown]

NARRATIVE: CASE EVENT DATE: 20220101
